FAERS Safety Report 4649338-3 (Version None)
Quarter: 2005Q2

REPORT INFORMATION
  Report Type: 
  Country: None (occurrence: None)
  Receive Date: 20050429
  Receipt Date: 20040115
  Transmission Date: 20051028
  Serious: Yes (Hospitalization, Other)
  Sender: FDA-Public Use
  Company Number: IT-ABBOTT-04P-083-0247409-00

PATIENT
  Sex: Female
  Weight: 58 kg

DRUGS (15)
  1. HUMIRA [Suspect]
     Indication: RHEUMATOID ARTHRITIS
     Route: 058
     Dates: start: 20031023, end: 20031205
  2. METHOTREXATE [Concomitant]
     Indication: RHEUMATOID ARTHRITIS
     Route: 030
     Dates: start: 20030619, end: 20031218
  3. METHOTREXATE [Concomitant]
     Route: 030
     Dates: start: 20021121, end: 20030619
  4. HYDROXYCHLOROQUINE PHOSPHATE [Concomitant]
     Indication: RHEUMATOID ARTHRITIS
     Route: 048
     Dates: start: 19960219, end: 19961010
  5. HYDROXYCHLOROQUINE PHOSPHATE [Concomitant]
     Route: 048
     Dates: start: 19961010, end: 19980505
  6. HYDROXYCHLOROQUINE PHOSPHATE [Concomitant]
     Route: 048
     Dates: start: 19980813, end: 19990122
  7. HYDROXYCHLOROQUINE PHOSPHATE [Concomitant]
     Route: 048
     Dates: start: 19990122, end: 19990602
  8. AURANOFIN [Concomitant]
     Indication: RHEUMATOID ARTHRITIS
     Route: 048
     Dates: start: 19980602, end: 19991203
  9. FOLIC ACID [Concomitant]
     Indication: RHEUMATOID ARTHRITIS
     Route: 048
     Dates: start: 20030620, end: 20031218
  10. RALOXIFENE HCL [Concomitant]
     Indication: OSTEOPOROSIS
     Route: 048
     Dates: start: 20030620, end: 20040325
  11. LOSARTAN POTASSIUM [Concomitant]
     Indication: HYPERTENSION
     Route: 048
     Dates: start: 20030620
  12. LANSOPRAZOLE [Concomitant]
     Indication: GASTROOESOPHAGEAL REFLUX DISEASE
     Route: 048
     Dates: start: 20030620
  13. METHYLPREDNISOLONE [Concomitant]
     Indication: RHEUMATOID ARTHRITIS
     Route: 048
     Dates: start: 20031227, end: 20040313
  14. METHYLPREDNISOLONE [Concomitant]
     Route: 048
     Dates: start: 20040325, end: 20040519
  15. ALENDRONATE SODIUM [Concomitant]
     Indication: OSTEOPOROSIS
     Route: 048
     Dates: start: 20040325

REACTIONS (2)
  - BRONCHOPNEUMONIA [None]
  - PLEURISY [None]
